FAERS Safety Report 6332096-4 (Version None)
Quarter: 2009Q3

REPORT INFORMATION
  Report Type: 
  Country: None (occurrence: None)
  Receive Date: 20090828
  Receipt Date: 20090817
  Transmission Date: 20100115
  Serious: Yes (Other)
  Sender: FDA-Public Use
  Company Number: US-BAYER-200930483NA

PATIENT
  Age: 41 Year
  Sex: Female

DRUGS (1)
  1. BETASERON [Suspect]
     Indication: PRIMARY PROGRESSIVE MULTIPLE SCLEROSIS
     Dosage: TOTAL DAILY DOSE: 2 MIU
     Route: 058
     Dates: start: 20090717, end: 20090728

REACTIONS (2)
  - FATIGUE [None]
  - MOBILITY DECREASED [None]
